FAERS Safety Report 4471784-1 (Version None)
Quarter: 2004Q4

REPORT INFORMATION
  Report Type: 
  Country: None (occurrence: None)
  Receive Date: 20041006
  Receipt Date: 20040928
  Transmission Date: 20050328
  Serious: Yes (Hospitalization)
  Sender: FDA-Public Use
  Company Number: 200310545BYL

PATIENT
  Age: 74 Year
  Sex: Female

DRUGS (7)
  1. ASPIRIN [Suspect]
     Indication: ANGINA PECTORIS
     Dosage: 100 MG, QD, ORAL
     Route: 048
     Dates: start: 20031120, end: 20031121
  2. PLETAL [Suspect]
     Indication: ANGINA PECTORIS
     Dosage: 100 MG, QD, ORAL
     Route: 048
     Dates: start: 20031120, end: 20031121
  3. NORVASC [Concomitant]
  4. CARVEDILOL [Concomitant]
  5. GASTER [Concomitant]
  6. ISOSORBIDE MONONITRATE [Concomitant]
  7. LOCHOL [Concomitant]

REACTIONS (4)
  - EXTRADURAL HAEMATOMA [None]
  - PARALYSIS [None]
  - POST PROCEDURAL HAEMATOMA [None]
  - SURGERY [None]
